FAERS Safety Report 11644631 (Version 1)
Quarter: 2015Q4

REPORT INFORMATION
  Report Type: Spontaneous
  Country: US (occurrence: None)
  Receive Date: 20151019
  Receipt Date: 20151019
  Transmission Date: 20160304
  Serious: No
  Sender: FDA-Public Use
  Company Number: None

PATIENT
  Sex: Female

DRUGS (24)
  1. ASPIRIN CHW 81MG [Concomitant]
  2. ACIDOPHILUS CAP [Concomitant]
  3. AMITRIPTYLIN TAB [Concomitant]
  4. CHERRY LIQ FLAVOR [Concomitant]
  5. ALBUTEROL NEB [Concomitant]
  6. BENICAR [Concomitant]
     Active Substance: OLMESARTAN MEDOXOMIL
  7. LIPITOR [Concomitant]
     Active Substance: ATORVASTATIN CALCIUM
  8. MELATONIN CAP [Concomitant]
  9. POTASSIUM TABLET [Concomitant]
     Active Substance: POTASSIUM
  10. AMLODIPINE [Concomitant]
     Active Substance: AMLODIPINE BESYLATE
  11. NYSTATIN CRE [Concomitant]
  12. TYLENOL [Concomitant]
     Active Substance: ACETAMINOPHEN
  13. BOSULIF [Suspect]
     Active Substance: BOSUTINIB MONOHYDRATE
     Indication: CHRONIC MYELOID LEUKAEMIA
     Route: 048
     Dates: start: 20141206
  14. LASIX [Concomitant]
     Active Substance: FUROSEMIDE
  15. IPRATROPIUM/SOL ALBUTER [Concomitant]
  16. ALLOPURINOL POW [Concomitant]
  17. FLOVENT HFA AER [Concomitant]
  18. PREDNISONE PAK [Concomitant]
  19. PRENATAL TAB VITAMINS [Concomitant]
  20. NYSTATIN POW [Concomitant]
  21. XOPENEX NEB [Concomitant]
  22. FLOVENT DISK AER [Concomitant]
  23. CRANBERRY CAPSULE [Concomitant]
     Active Substance: DIETARY SUPPLEMENT
  24. VITAMIN D2 TAB [Concomitant]

REACTIONS (3)
  - Constipation [None]
  - Headache [None]
  - Nausea [None]
